FAERS Safety Report 25571834 (Version 2)
Quarter: 2025Q3

REPORT INFORMATION
  Report Type: Other
  Country: CN (occurrence: CN)
  Receive Date: 20250717
  Receipt Date: 20250730
  Transmission Date: 20251021
  Serious: Yes (Hospitalization)
  Sender: INCYTE
  Company Number: CN-INNOVENTBIO-INN2025005894

PATIENT
  Age: 37 Year
  Weight: 55 kg

DRUGS (1)
  1. PEMAZYRE [Suspect]
     Active Substance: PEMIGATINIB
     Indication: Cholangiocarcinoma
     Dosage: 13.5 MG, QD
     Route: 065

REACTIONS (2)
  - Skin ulcer [Recovering/Resolving]
  - Rash [Recovering/Resolving]
